FAERS Safety Report 17386510 (Version 2)
Quarter: 2020Q1

REPORT INFORMATION
  Report Type: Spontaneous
  Country: RU (occurrence: RU)
  Receive Date: 20200206
  Receipt Date: 20200211
  Transmission Date: 20200409
  Serious: Yes (Life-Threatening, Other)
  Sender: FDA-Public Use
  Company Number: NVSC2020RU031292

PATIENT
  Age: 67 Year
  Sex: Male
  Weight: 79 kg

DRUGS (12)
  1. ZYVOX [Concomitant]
     Active Substance: LINEZOLID
     Indication: PNEUMONIA
     Dosage: 600 MG, BID
     Route: 041
     Dates: start: 20190414, end: 20190419
  2. AMIKACIN. [Suspect]
     Active Substance: AMIKACIN
     Indication: PNEUMONIA
     Dosage: 1 G, QD
     Route: 041
     Dates: start: 20190418, end: 20190429
  3. MEROPENEM. [Concomitant]
     Active Substance: MEROPENEM
     Dosage: 2 UNK
     Route: 041
     Dates: start: 20190416, end: 20190429
  4. VORICONAZOLE SANDOZ [Suspect]
     Active Substance: VORICONAZOLE
     Dosage: 600 UNK (2 DAYS)
     Route: 042
     Dates: start: 20190418, end: 20190420
  5. UROREC [Concomitant]
     Active Substance: SILODOSIN
     Indication: URINARY RETENTION
     Dosage: 8 MG, QD (IN EVENING)
     Route: 048
     Dates: start: 20190412, end: 20190429
  6. OMEPRAZOLE. [Concomitant]
     Active Substance: OMEPRAZOLE
     Indication: GASTRITIS
     Dosage: 20 MG, BID
     Route: 048
     Dates: start: 20190412, end: 20190429
  7. MEROPENEM. [Concomitant]
     Active Substance: MEROPENEM
     Indication: PNEUMONIA
     Dosage: 1 G, TID
     Route: 041
     Dates: start: 20190416, end: 20190429
  8. DIMEDROL [Suspect]
     Active Substance: DIPHENHYDRAMINE
     Indication: HYPERTHERMIA
     Dosage: 10 MG(1 MG/ML )
     Route: 040
     Dates: start: 20190419, end: 20190419
  9. FLUCONAZOLE. [Concomitant]
     Active Substance: FLUCONAZOLE
     Indication: FUNGAL INFECTION
     Dosage: 400 MG, QD
     Route: 041
     Dates: start: 20190416, end: 20190419
  10. VORICONAZOLE SANDOZ [Suspect]
     Active Substance: VORICONAZOLE
     Indication: BRONCHOPULMONARY ASPERGILLOSIS
     Dosage: 300 MG, QD(2 DAYS)
     Route: 042
     Dates: start: 20190418, end: 20190420
  11. PARACETAMOL [Suspect]
     Active Substance: ACETAMINOPHEN
     Indication: HYPERTHERMIA
     Dosage: 1000 MG, QD
     Route: 041
     Dates: start: 20190419, end: 20190429
  12. ALLOPURINOL. [Concomitant]
     Active Substance: ALLOPURINOL
     Indication: TUMOUR LYSIS SYNDROME
     Dosage: 100 MG, TID
     Route: 048
     Dates: start: 20190412, end: 20190420

REACTIONS (3)
  - Urticaria [Recovered/Resolved]
  - Bronchospasm [Recovering/Resolving]
  - Pruritus [Recovered/Resolved]

NARRATIVE: CASE EVENT DATE: 20190420
